FAERS Safety Report 4601897-2 (Version None)
Quarter: 2005Q1

REPORT INFORMATION
  Report Type: 
  Country: None (occurrence: None)
  Receive Date: 20050201
  Receipt Date: 20031222
  Transmission Date: 20050727
  Serious: Yes (Hospitalization, Other)
  Sender: FDA-Public Use
  Company Number: 200330827BWH

PATIENT
  Age: 66 Year
  Sex: Female
  Weight: 117.9352 kg

DRUGS (5)
  1. AVELOX [Suspect]
     Indication: ENTEROBACTER INFECTION
     Dosage: 400 MG, TOTAL DAILY, ORAL
     Route: 048
     Dates: start: 20031209, end: 20031215
  2. AVELOX [Suspect]
     Indication: OSTEOMYELITIS
     Dosage: 400 MG, TOTAL DAILY, ORAL
     Route: 048
     Dates: start: 20031209, end: 20031215
  3. IV VANCOMYCIN (VANCOMYCIN) [Suspect]
     Indication: OSTEOMYELITIS
     Dosage: 1 G, TOTAL DAILY, INTRAVENOUS
     Route: 042
     Dates: start: 20031124, end: 20031215
  4. IV VANCOMYCIN (VANCOMYCIN) [Suspect]
     Indication: STAPHYLOCOCCAL INFECTION
     Dosage: 1 G, TOTAL DAILY, INTRAVENOUS
     Route: 042
     Dates: start: 20031124, end: 20031215
  5. ROCEPHIN [Concomitant]

REACTIONS (15)
  - ANAL ULCER [None]
  - DYSPHAGIA [None]
  - LETHARGY [None]
  - MALAISE [None]
  - MOUTH ULCERATION [None]
  - PHARYNGEAL ULCERATION [None]
  - PYREXIA [None]
  - RASH MACULO-PAPULAR [None]
  - SKIN BURNING SENSATION [None]
  - SKIN EXFOLIATION [None]
  - SKIN ULCER [None]
  - STEVENS-JOHNSON SYNDROME [None]
  - TONGUE ULCERATION [None]
  - TREMOR [None]
  - VULVAL ULCERATION [None]
